FAERS Safety Report 4786837-8 (Version None)
Quarter: 2005Q4

REPORT INFORMATION
  Report Type: 
  Country: None (occurrence: None)
  Receive Date: 20051003
  Receipt Date: 20051003
  Transmission Date: 20060501
  Serious: Yes (Hospitalization)
  Sender: FDA-Public Use
  Company Number: None

PATIENT
  Sex: Female
  Weight: 62.1428 kg

DRUGS (2)
  1. TOPOTECAN 0.6 MG/M2 DAILY X 5 [Suspect]
     Indication: SQUAMOUS CELL CARCINOMA OF THE CERVIX
     Dosage: 0.98MG, D 1-5 , IV
     Route: 042
     Dates: start: 20050808, end: 20050812
  2. CISPLATIN [Suspect]
     Indication: SQUAMOUS CELL CARCINOMA OF THE CERVIX
     Dosage: 82 MG, D5, IV
     Route: 042
     Dates: start: 20050812

REACTIONS (7)
  - DEPRESSION [None]
  - DISEASE PROGRESSION [None]
  - METASTASES TO LUNG [None]
  - PAIN [None]
  - PYELONEPHRITIS [None]
  - PYREXIA [None]
  - TUMOUR ASSOCIATED FEVER [None]
